FAERS Safety Report 17077023 (Version 1)
Quarter: 2019Q4

REPORT INFORMATION
  Report Type: Spontaneous
  Country: IT (occurrence: IT)
  Receive Date: 20191126
  Receipt Date: 20191126
  Transmission Date: 20200122
  Serious: Yes (Other)
  Sender: FDA-Public Use
  Company Number: IT-ELI_LILLY_AND_COMPANY-IT201911007177

PATIENT
  Age: 61 Year
  Sex: Female

DRUGS (8)
  1. OMEPRAZEN [OMEPRAZOLE SODIUM] [Concomitant]
  2. DOBETIN [CYANOCOBALAMIN] [Concomitant]
  3. GEMCITABINE HYDROCHLORIDE. [Suspect]
     Active Substance: GEMCITABINE HYDROCHLORIDE
     Indication: LUNG NEOPLASM MALIGNANT
     Dosage: 1650 MG, CYCLICAL
     Route: 042
     Dates: start: 20190515, end: 20190718
  4. TRIATEC [RAMIPRIL] [Concomitant]
     Active Substance: RAMIPRIL
  5. TOTALIP [Concomitant]
     Active Substance: ATORVASTATIN
  6. CISPLATIN. [Suspect]
     Active Substance: CISPLATIN
     Indication: LUNG NEOPLASM MALIGNANT
     Dosage: 1258 MG, CYCLICAL
     Route: 042
     Dates: start: 20190515, end: 20190718
  7. METFORMIN [Concomitant]
     Active Substance: METFORMIN HYDROCHLORIDE
     Dosage: 500 MG
  8. CARDIOASPIRIN [Concomitant]
     Active Substance: ASPIRIN

REACTIONS (2)
  - Dehydration [Recovering/Resolving]
  - Renal failure [Recovering/Resolving]

NARRATIVE: CASE EVENT DATE: 20190718
